FAERS Safety Report 15828087 (Version 1)
Quarter: 2019Q1

REPORT INFORMATION
  Report Type: Spontaneous
  Country: US (occurrence: US)
  Receive Date: 20190115
  Receipt Date: 20190115
  Transmission Date: 20190417
  Serious: Yes (Other)
  Sender: FDA-Public Use
  Company Number: US-PFIZER INC-2018519039

PATIENT
  Age: 73 Year
  Sex: Male
  Weight: 91 kg

DRUGS (7)
  1. FISH OIL [Concomitant]
     Active Substance: FISH OIL
     Dosage: UNK
  2. VIAGRA [Suspect]
     Active Substance: SILDENAFIL CITRATE
     Indication: SEXUAL DYSFUNCTION
  3. LORATADINE. [Concomitant]
     Active Substance: LORATADINE
     Indication: ANTIALLERGIC THERAPY
     Dosage: 10 MG, 1X/DAY [IN MORNINGS]
  4. LANSOPRAZOLE. [Concomitant]
     Active Substance: LANSOPRAZOLE
     Indication: DYSPEPSIA
     Dosage: 30 MG, UNK
  5. BABY ASPIRIN [Concomitant]
     Active Substance: ASPIRIN
     Dosage: 81 MG, UNK
  6. VIAGRA [Suspect]
     Active Substance: SILDENAFIL CITRATE
     Indication: HERNIA PAIN
     Dosage: 50 MG, UNK [APPROXIMATELY 3-4 TIMES PER WEEK ]
     Route: 048
     Dates: end: 20181231
  7. ALEVE [Concomitant]
     Active Substance: NAPROXEN SODIUM
     Dosage: UNK

REACTIONS (4)
  - Constipation [Unknown]
  - Bowel movement irregularity [Unknown]
  - Haematochezia [Recovered/Resolved]
  - Product use in unapproved indication [Unknown]
